FAERS Safety Report 8561290-7 (Version None)
Quarter: 2012Q3

REPORT INFORMATION
  Report Type: 
  Country: None (occurrence: None)
  Receive Date: 20120802
  Receipt Date: 20120720
  Transmission Date: 20120928
  Serious: No
  Sender: FDA-Public Use
  Company Number: US-ASTRAZENECA-2012SE51824

PATIENT
  Age: 85 Year
  Sex: Female

DRUGS (3)
  1. SEROQUEL XR [Suspect]
     Indication: HALLUCINATION
     Route: 048
  2. SEROQUEL XR [Suspect]
     Indication: ANGER
     Route: 048
  3. SEROQUEL XR [Suspect]
     Indication: AGITATION
     Route: 048

REACTIONS (5)
  - DRUG DOSE OMISSION [None]
  - DEMENTIA ALZHEIMER'S TYPE [None]
  - GAIT DISTURBANCE [None]
  - ADVERSE EVENT [None]
  - OFF LABEL USE [None]
